FAERS Safety Report 16480418 (Version 13)
Quarter: 2020Q1

REPORT INFORMATION
  Report Type: Spontaneous
  Country: US (occurrence: US)
  Receive Date: 20190626
  Receipt Date: 20200203
  Transmission Date: 20200409
  Serious: Yes (Hospitalization)
  Sender: FDA-Public Use
  Company Number: US-ACTELION-A-NJ2019-191378

PATIENT
  Age: 47 Year
  Sex: Female
  Weight: 88.44 kg

DRUGS (6)
  1. VELETRI [Suspect]
     Active Substance: EPOPROSTENOL
     Dosage: 20 NG/KG, PER MIN
     Route: 042
  2. VELETRI [Suspect]
     Active Substance: EPOPROSTENOL
     Dosage: 14 NG/KG, PER MIN
     Route: 042
  3. TADALAFIL. [Concomitant]
     Active Substance: TADALAFIL
  4. VELETRI [Suspect]
     Active Substance: EPOPROSTENOL
     Indication: PULMONARY ARTERIAL HYPERTENSION
     Dosage: 22 NG/KG, PER MIN
     Route: 042
  5. VELETRI [Suspect]
     Active Substance: EPOPROSTENOL
     Dosage: 10 NG/KG, PER MIN
     Route: 042
  6. VELETRI [Suspect]
     Active Substance: EPOPROSTENOL
     Dosage: 34 NG/KG, PER MIN
     Route: 042

REACTIONS (39)
  - Device physical property issue [Unknown]
  - Headache [Recovering/Resolving]
  - Muscle spasms [Recovering/Resolving]
  - Abdominal pain upper [Unknown]
  - Abdominal distension [Unknown]
  - Gait inability [Unknown]
  - Blood potassium decreased [Unknown]
  - Wrong technique in product usage process [Unknown]
  - Fluid retention [Unknown]
  - Glossodynia [Unknown]
  - Musculoskeletal chest pain [Unknown]
  - Myalgia [Unknown]
  - Catheter site irritation [Unknown]
  - Device occlusion [Unknown]
  - Pain [Unknown]
  - Sleep disorder [Not Recovered/Not Resolved]
  - Palpitations [Unknown]
  - Dyspnoea exertional [Unknown]
  - Nausea [Recovering/Resolving]
  - Back pain [Unknown]
  - Catheter site rash [Unknown]
  - Dermatitis contact [Unknown]
  - Pain in jaw [Unknown]
  - Catheter site erythema [Unknown]
  - Device dislocation [Unknown]
  - Device related infection [Unknown]
  - Dyspnoea [Recovering/Resolving]
  - Catheter management [Unknown]
  - Catheter site pruritus [Unknown]
  - Skin disorder [Unknown]
  - Device alarm issue [Unknown]
  - Constipation [Unknown]
  - Pain in extremity [Unknown]
  - Pulmonary arterial pressure increased [Unknown]
  - Abdominal pain lower [Unknown]
  - Chest pain [Unknown]
  - Oedema peripheral [Unknown]
  - Bone pain [Unknown]
  - Tongue discomfort [Unknown]

NARRATIVE: CASE EVENT DATE: 20190601
